FAERS Safety Report 9000658 (Version 3)
Quarter: 2013Q1

REPORT INFORMATION
  Report Type: Spontaneous
  Country: FR (occurrence: None)
  Receive Date: 20121226
  Receipt Date: 20130318
  Transmission Date: 20140127
  Serious: Yes (Hospitalization)
  Sender: FDA-Public Use
  Company Number: ACO_33355_2012

PATIENT
  Age: 35 Year
  Sex: Female

DRUGS (1)
  1. FAMPRIDINE [Suspect]
     Indication: MULTIPLE SCLEROSIS
     Route: 048
     Dates: start: 20120706

REACTIONS (2)
  - Metrorrhagia [None]
  - Investigation [None]
